FAERS Safety Report 9394727 (Version 1)
Quarter: 2013Q3

REPORT INFORMATION
  Report Type: Spontaneous
  Country: US (occurrence: US)
  Receive Date: 20130711
  Receipt Date: 20130711
  Transmission Date: 20140515
  Serious: No
  Sender: FDA-Public Use
  Company Number: US-BAYER-2013-084199

PATIENT
  Age: 43 Year
  Sex: Female

DRUGS (1)
  1. MIRENA [Suspect]
     Indication: CONTRACEPTION
     Dosage: 20 ?G, CONT
     Route: 015
     Dates: start: 20100217, end: 20130304

REACTIONS (6)
  - Menstruation irregular [None]
  - Vulvovaginal swelling [None]
  - Vaginal odour [None]
  - Device expulsion [None]
  - Abdominal pain lower [None]
  - Abdominal distension [None]
